FAERS Safety Report 6714878-X (Version None)
Quarter: 2010Q2

REPORT INFORMATION
  Report Type: 
  Country: None (occurrence: None)
  Receive Date: 20100507
  Receipt Date: 20100427
  Transmission Date: 20101027
  Serious: Yes (Other)
  Sender: FDA-Public Use
  Company Number: AT-BAYER-201023230GPV

PATIENT
  Age: 40 Year
  Sex: Female
  Weight: 60 kg

DRUGS (3)
  1. MIRENA [Suspect]
     Indication: CONTRACEPTION
     Route: 015
     Dates: start: 20100420
  2. CYCLOKAPRON [Suspect]
     Indication: GENITAL HAEMORRHAGE
     Route: 048
  3. CYCLOKAPRON [Suspect]
     Route: 067

REACTIONS (3)
  - DEEP VEIN THROMBOSIS [None]
  - GENITAL HAEMORRHAGE [None]
  - PULMONARY EMBOLISM [None]
